FAERS Safety Report 25772945 (Version 1)
Quarter: 2025Q3

REPORT INFORMATION
  Report Type: Spontaneous
  Country: US (occurrence: US)
  Receive Date: 20250908
  Receipt Date: 20250908
  Transmission Date: 20251021
  Serious: No
  Sender: ELI LILLY AND COMPANY
  Company Number: US-ELI_LILLY_AND_COMPANY-US202508012277

PATIENT
  Age: 82 Year
  Sex: Female

DRUGS (2)
  1. KISUNLA [Suspect]
     Active Substance: DONANEMAB-AZBT
     Indication: Cognitive disorder
     Route: 065
  2. KISUNLA [Suspect]
     Active Substance: DONANEMAB-AZBT
     Indication: Dementia Alzheimer^s type
     Route: 065
     Dates: start: 20250811

REACTIONS (5)
  - Pain in extremity [Recovered/Resolved]
  - Back pain [Recovered/Resolved]
  - Abnormal behaviour [Recovered/Resolved]
  - Confusional state [Recovered/Resolved]
  - Nausea [Recovered/Resolved]

NARRATIVE: CASE EVENT DATE: 20250811
